FAERS Safety Report 5380202-0 (Version None)
Quarter: 2007Q3

REPORT INFORMATION
  Report Type: 
  Country: None (occurrence: None)
  Receive Date: 20070706
  Receipt Date: 20070510
  Transmission Date: 20080115
  Serious: No
  Sender: FDA-Public Use
  Company Number: A0650822A

PATIENT
  Age: 47 Year
  Sex: Female

DRUGS (7)
  1. TYKERB [Suspect]
     Indication: BREAST CANCER
     Dosage: 5TAB PER DAY
     Route: 048
     Dates: start: 20070401
  2. XELODA [Suspect]
  3. CAPTOPRIL [Concomitant]
  4. METOPROLOL SUCCINATE [Concomitant]
  5. SPIRONOLACTONE [Concomitant]
  6. AMIODARONE [Concomitant]
  7. SIMVASTATIN [Concomitant]

REACTIONS (4)
  - DIARRHOEA [None]
  - DRY SKIN [None]
  - LIP BLISTER [None]
  - ORAL MUCOSAL BLISTERING [None]
